FAERS Safety Report 14390941 (Version 2)
Quarter: 2018Q1

REPORT INFORMATION
  Report Type: Spontaneous
  Country: FR (occurrence: FR)
  Receive Date: 20180116
  Receipt Date: 20180305
  Transmission Date: 20180509
  Serious: Yes (Other)
  Sender: FDA-Public Use
  Company Number: FR-AUROBINDO-AUR-APL-2018-001956

PATIENT
  Age: 39 Year
  Sex: Male
  Weight: 66 kg

DRUGS (6)
  1. PARACETAMOL [Suspect]
     Active Substance: ACETAMINOPHEN
     Indication: PAIN
     Dosage: ()
     Route: 042
     Dates: start: 20171007, end: 20171010
  2. TIENAM [Suspect]
     Active Substance: CILASTATIN SODIUM\IMIPENEM
     Indication: ANTIBIOTIC THERAPY
     Dosage: ()
     Route: 042
     Dates: start: 20171010, end: 20171024
  3. IOMERON [Suspect]
     Active Substance: IOMEPROL
     Indication: COMPUTERISED TOMOGRAM
     Dosage: ()
     Route: 042
     Dates: start: 20171105, end: 20171105
  4. IOMERON [Suspect]
     Active Substance: IOMEPROL
     Dosage: ()
     Route: 042
     Dates: start: 20171008, end: 20171008
  5. CEFTRIAXONE. [Suspect]
     Active Substance: CEFTRIAXONE
     Indication: ANTIBIOTIC THERAPY
     Dosage: ()
     Route: 042
     Dates: start: 20171008, end: 20171010
  6. FLAGYL [Suspect]
     Active Substance: METRONIDAZOLE\METRONIDAZOLE HYDROCHLORIDE
     Indication: ANTIBIOTIC THERAPY
     Dosage: ()
     Route: 042
     Dates: start: 20171008, end: 20171010

REACTIONS (2)
  - Necrosis [Recovering/Resolving]
  - Venous injury [Recovering/Resolving]

NARRATIVE: CASE EVENT DATE: 201710
